FAERS Safety Report 15905401 (Version 2)
Quarter: 2019Q1

REPORT INFORMATION
  Report Type: Spontaneous
  Country: US (occurrence: US)
  Receive Date: 20190204
  Receipt Date: 20190214
  Transmission Date: 20190417
  Serious: No
  Sender: FDA-Public Use
  Company Number: US-VERTEX PHARMACEUTICALS-2019-000920

PATIENT
  Sex: Male
  Weight: 19 kg

DRUGS (13)
  1. SYMBICORT [Concomitant]
     Active Substance: BUDESONIDE\FORMOTEROL FUMARATE DIHYDRATE
     Dosage: 1 PUFF, BID
     Route: 048
  2. SCANDISHAKE MIX [Concomitant]
     Active Substance: DIETARY SUPPLEMENT
     Dosage: 2 PACKETS QD
  3. ZINC OXIDE. [Concomitant]
     Active Substance: ZINC OXIDE
     Route: 061
  4. PULMOZYME [Concomitant]
     Active Substance: DORNASE ALFA
     Dosage: 1 AMP, QD
     Route: 055
  5. KENALOG [Concomitant]
     Active Substance: TRIAMCINOLONE ACETONIDE
     Dosage: UNK, BID
     Route: 061
  6. FLONASE                            /00908302/ [Concomitant]
     Active Substance: MOMETASONE FUROATE
     Dosage: 1 SPRAY EACH NOSTRIL, BID
  7. ALLEGRA ALLERGY NON DROWSY [Concomitant]
     Dosage: 5 MILLILITER, QD
     Route: 048
  8. ZENPEP [Concomitant]
     Active Substance: PANCRELIPASE AMYLASE\PANCRELIPASE LIPASE\PANCRELIPASE PROTEASE
     Dosage: TAKE TWO CAPSULES WITH MEALS AND ONE CAP WITH SNACKS
     Route: 048
  9. HYDROXYZINE HCL [Concomitant]
     Active Substance: HYDROXYZINE HYDROCHLORIDE
     Dosage: 3.5, QD IN EVENING
     Route: 048
  10. MIRALAX [Concomitant]
     Active Substance: POLYETHYLENE GLYCOL 3350
     Indication: CONSTIPATION
     Dosage: 17 GRAM/ DOSE DAILY AS NEEDED
  11. AQUADEKS                           /07679501/ [Concomitant]
     Active Substance: MINERALS\VITAMINS
     Dosage: 1 DOSAGE FORM, QD
     Route: 048
  12. ORKAMBI [Suspect]
     Active Substance: IVACAFTOR\LUMACAFTOR
     Indication: CYSTIC FIBROSIS
     Dosage: 150/188 MG GRANULES, BID
     Route: 048
     Dates: start: 20180912
  13. ALBUTEROL                          /00139501/ [Concomitant]
     Active Substance: ALBUTEROL
     Indication: RESPIRATORY DISTRESS
     Dosage: 1 UT EVRY 3-4 HOUR
     Route: 055

REACTIONS (1)
  - Influenza [Unknown]
